FAERS Safety Report 13311689 (Version 1)
Quarter: 2017Q1

REPORT INFORMATION
  Report Type: Spontaneous
  Country: US (occurrence: US)
  Receive Date: 20170308
  Receipt Date: 20170308
  Transmission Date: 20170428
  Serious: Yes (Other)
  Sender: FDA-Public Use
  Company Number: None

PATIENT
  Age: 32 Year
  Sex: Male
  Weight: 67.59 kg

DRUGS (2)
  1. BUP/NAL ORANGE FLAVORED TABS 8/2 MG [Suspect]
     Active Substance: BUPRENORPHINE\NALOXONE
  2. SUBOXONE [Suspect]
     Active Substance: BUPRENORPHINE HYDROCHLORIDE\NALOXONE HYDROCHLORIDE
     Indication: DRUG DEPENDENCE
     Route: 060
     Dates: start: 20170209

REACTIONS (4)
  - Pain [None]
  - Dysphagia [None]
  - Swollen tongue [None]
  - Blister [None]

NARRATIVE: CASE EVENT DATE: 20170223
